FAERS Safety Report 18884907 (Version 2)
Quarter: 2021Q2

REPORT INFORMATION
  Report Type: Not Available
  Country: US (occurrence: US)
  Receive Date: 20210212
  Receipt Date: 20210429
  Transmission Date: 20210717
  Serious: No
  Sender: FDA-Public Use
  Company Number: US-ACORDA-ACO_167768_2021

PATIENT
  Sex: Female

DRUGS (1)
  1. AMPYRA [Suspect]
     Active Substance: DALFAMPRIDINE
     Indication: GAIT DISTURBANCE
     Dosage: 10 MILLIGRAM, BID
     Route: 048
     Dates: start: 202009

REACTIONS (1)
  - No adverse event [Unknown]
